FAERS Safety Report 25847543 (Version 1)
Quarter: 2025Q3

REPORT INFORMATION
  Report Type: Spontaneous
  Country: US (occurrence: US)
  Receive Date: 20250925
  Receipt Date: 20250925
  Transmission Date: 20251021
  Serious: Yes (Other)
  Sender: SANDOZ
  Company Number: US-SANDOZ-SDZ2025US067948

PATIENT
  Age: 79 Year
  Sex: Female

DRUGS (4)
  1. JUBBONTI [Suspect]
     Active Substance: DENOSUMAB-BBDZ
     Indication: Osteoporosis
     Route: 065
  2. JUBBONTI [Suspect]
     Active Substance: DENOSUMAB-BBDZ
     Indication: Rheumatoid arthritis
  3. PROLIA [Suspect]
     Active Substance: DENOSUMAB
     Indication: Osteoporosis
     Route: 065
  4. PROLIA [Suspect]
     Active Substance: DENOSUMAB
     Indication: Rheumatoid arthritis

REACTIONS (9)
  - Foot operation [Unknown]
  - Open fracture [Unknown]
  - Foot fracture [Unknown]
  - Skin ulcer [Unknown]
  - Fall [Unknown]
  - Rib fracture [Unknown]
  - Balance disorder [Unknown]
  - Inability to afford medication [Unknown]
  - Dizziness [Unknown]
